FAERS Safety Report 12677448 (Version 1)
Quarter: 2016Q3

REPORT INFORMATION
  Report Type: Not Available
  Country: None (occurrence: US)
  Receive Date: 20160823
  Receipt Date: 20160823
  Transmission Date: 20161109
  Serious: No
  Sender: FDA-Public Use
  Company Number: US-AKORN-37081

PATIENT
  Sex: Female

DRUGS (1)
  1. LATANOPROST OPHTHALMIC SOLUTION  0.005% [Suspect]
     Active Substance: LATANOPROST

REACTIONS (2)
  - Dry eye [Unknown]
  - Adverse reaction [Unknown]
